FAERS Safety Report 5134493-1 (Version None)
Quarter: 2006Q4

REPORT INFORMATION
  Report Type: 
  Country: None (occurrence: None)
  Receive Date: 20061019
  Receipt Date: 20061003
  Transmission Date: 20070319
  Serious: Yes (Hospitalization)
  Sender: FDA-Public Use
  Company Number: US200610000720

PATIENT
  Sex: Female

DRUGS (2)
  1. EVISTA [Suspect]
     Indication: OSTEOPOROSIS
     Dosage: ORAL
     Route: 048
     Dates: end: 20060101
  2. DIOVAN [Concomitant]

REACTIONS (6)
  - ANKLE FRACTURE [None]
  - FIBULA FRACTURE [None]
  - LIMB INJURY [None]
  - OPEN FRACTURE [None]
  - TIBIA FRACTURE [None]
  - UPPER LIMB FRACTURE [None]
